FAERS Safety Report 4424550-7 (Version None)
Quarter: 2004Q3

REPORT INFORMATION
  Report Type: 
  Country: None (occurrence: None)
  Receive Date: 20040812
  Receipt Date: 20040802
  Transmission Date: 20050211
  Serious: Yes (Death)
  Sender: FDA-Public Use
  Company Number: PHBS2004FR10488

PATIENT
  Age: 53 Year
  Sex: Female

DRUGS (2)
  1. IMIPRAM TAB [Suspect]
     Indication: PSYCHOTIC DISORDER
     Dosage: 150 MG/D
  2. LEVOMEPROMAZINE [Suspect]
     Dosage: 400 MG/D

REACTIONS (3)
  - ARRHYTHMIA [None]
  - MENDELSON'S SYNDROME [None]
  - SUDDEN DEATH [None]
